FAERS Safety Report 21281247 (Version 1)
Quarter: 2022Q3

REPORT INFORMATION
  Report Type: Spontaneous
  Country: US (occurrence: US)
  Receive Date: 20220901
  Receipt Date: 20220901
  Transmission Date: 20221027
  Serious: No
  Sender: FDA-Public Use
  Company Number: US-ALLERGAN-2203768US

PATIENT
  Sex: Female

DRUGS (2)
  1. FETZIMA [Suspect]
     Active Substance: LEVOMILNACIPRAN HYDROCHLORIDE
     Indication: Depression
     Dosage: 40 MG, QD
     Route: 048
     Dates: start: 201804, end: 20180829
  2. FETZIMA [Suspect]
     Active Substance: LEVOMILNACIPRAN HYDROCHLORIDE
     Indication: Anxiety
     Dosage: 20 MG, QD
     Route: 048
     Dates: start: 201803, end: 201804

REACTIONS (3)
  - Heavy menstrual bleeding [Not Recovered/Not Resolved]
  - Product use in unapproved indication [Unknown]
  - Blood thyroid stimulating hormone decreased [Not Recovered/Not Resolved]

NARRATIVE: CASE EVENT DATE: 20180101
